FAERS Safety Report 6330928-7 (Version None)
Quarter: 2009Q3

REPORT INFORMATION
  Report Type: 
  Country: None (occurrence: None)
  Receive Date: 20090827
  Receipt Date: 20090818
  Transmission Date: 20100115
  Serious: Yes (Hospitalization)
  Sender: FDA-Public Use
  Company Number: US-ELI_LILLY_AND_COMPANY-US200908004156

PATIENT
  Sex: Female

DRUGS (17)
  1. FORTEO [Suspect]
     Dates: end: 20090815
  2. COUMADIN [Concomitant]
  3. DIGOXIN [Concomitant]
  4. DILTIAZEM [Concomitant]
  5. METOPROLOL [Concomitant]
  6. DOXEPIN HCL [Concomitant]
  7. LEVOTHYROXINE [Concomitant]
  8. VYTORIN [Concomitant]
  9. EFFEXOR [Concomitant]
  10. HYDROCHLOROTHIAZIDE [Concomitant]
  11. ALLEGRA [Concomitant]
  12. MAGNESIUM [Concomitant]
  13. POTASSIUM CHLORIDE [Concomitant]
  14. LOVAZA [Concomitant]
  15. CALCIUM                                 /N/A/ [Concomitant]
  16. VITAMIN D [Concomitant]
  17. CENTRUM SILVER [Concomitant]

REACTIONS (7)
  - CHEST PAIN [None]
  - DRUG HYPERSENSITIVITY [None]
  - NAUSEA [None]
  - NECK PAIN [None]
  - PAIN IN JAW [None]
  - PHARYNGEAL OEDEMA [None]
  - SWOLLEN TONGUE [None]
